FAERS Safety Report 18307513 (Version 2)
Quarter: 2020Q4

REPORT INFORMATION
  Report Type: Report from Study
  Country: AR (occurrence: AR)
  Receive Date: 20200924
  Receipt Date: 20201005
  Transmission Date: 20210113
  Serious: Yes (Other)
  Sender: FDA-Public Use
  Company Number: NVSC2020AR258703

PATIENT
  Age: 70 Year
  Sex: Male

DRUGS (1)
  1. COSENTYX [Suspect]
     Active Substance: SECUKINUMAB
     Indication: PSORIASIS
     Dosage: 300 MG, QMO
     Route: 058
     Dates: start: 20180806, end: 20200701

REACTIONS (8)
  - Dysphagia [Recovering/Resolving]
  - Sleep apnoea syndrome [Unknown]
  - Haemorrhage [Recovering/Resolving]
  - Pharyngeal swelling [Recovering/Resolving]
  - Oxygen consumption decreased [Unknown]
  - Psoriasis [Unknown]
  - Swollen tongue [Recovering/Resolving]
  - Regurgitation [Recovering/Resolving]

NARRATIVE: CASE EVENT DATE: 202007
